FAERS Safety Report 18159580 (Version 5)
Quarter: 2021Q3

REPORT INFORMATION
  Report Type: Other
  Country: US (occurrence: US)
  Receive Date: 20200818
  Receipt Date: 20210802
  Transmission Date: 20211014
  Serious: Yes (Hospitalization, Other)
  Sender: FDA-Public Use
  Company Number: US-ROCHE-2657290

PATIENT
  Age: 48 Year
  Sex: Female
  Weight: 78.54 kg

DRUGS (10)
  1. BENADRYL [Concomitant]
     Active Substance: DIPHENHYDRAMINE HYDROCHLORIDE
     Indication: PREMEDICATION
  2. OCREVUS [Suspect]
     Active Substance: OCRELIZUMAB
     Dosage: ONGOING : YES
     Route: 065
     Dates: start: 20191029
  3. SOLU?MEDROL [Suspect]
     Active Substance: METHYLPREDNISOLONE SODIUM SUCCINATE
     Indication: PREMEDICATION
     Route: 065
  4. PROTONIX [Concomitant]
     Active Substance: PANTOPRAZOLE SODIUM
     Route: 048
     Dates: start: 20200624
  5. TYLENOL [Concomitant]
     Active Substance: ACETAMINOPHEN
     Indication: PREMEDICATION
  6. OCREVUS [Suspect]
     Active Substance: OCRELIZUMAB
     Indication: RELAPSING MULTIPLE SCLEROSIS
     Route: 042
  7. OCREVUS [Suspect]
     Active Substance: OCRELIZUMAB
     Dosage: LAST DATE OF TREATMENT:30/JUN/2021
     Route: 042
     Dates: start: 201905
  8. OCREVUS [Suspect]
     Active Substance: OCRELIZUMAB
     Indication: RELAPSING MULTIPLE SCLEROSIS
     Dosage: ONGOING : NO
     Route: 065
     Dates: start: 20191028
  9. NORCO [Concomitant]
     Active Substance: ACETAMINOPHEN\HYDROCODONE BITARTRATE
     Indication: PAIN MANAGEMENT
     Dosage: TAKES HALF PILL TWICE A DAY ;ONGOING: YES
     Route: 048
     Dates: start: 20110629
  10. FLEXERIL [Concomitant]
     Active Substance: CYCLOBENZAPRINE HYDROCHLORIDE
     Indication: MUSCLE SPASMS
     Route: 048
     Dates: start: 2011

REACTIONS (17)
  - Interstitial lung disease [Unknown]
  - Insomnia [Not Recovered/Not Resolved]
  - Pain [Unknown]
  - Herpes zoster [Recovered/Resolved]
  - Pharyngeal polyp [Unknown]
  - Multiple sclerosis relapse [Recovered/Resolved]
  - Neck pain [Recovered/Resolved]
  - Fatigue [Not Recovered/Not Resolved]
  - Chronic sinusitis [Not Recovered/Not Resolved]
  - Constipation [Unknown]
  - Pneumonia [Recovered/Resolved]
  - Energy increased [Not Recovered/Not Resolved]
  - Alopecia [Not Recovered/Not Resolved]
  - Contusion [Unknown]
  - Migraine [Recovered/Resolved]
  - Exostosis [Unknown]
  - Cyst [Not Recovered/Not Resolved]

NARRATIVE: CASE EVENT DATE: 201905
